FAERS Safety Report 14691734 (Version 3)
Quarter: 2018Q2

REPORT INFORMATION
  Report Type: Spontaneous
  Country: DE (occurrence: DE)
  Receive Date: 20180329
  Receipt Date: 20180419
  Transmission Date: 20180711
  Serious: Yes (Other)
  Sender: FDA-Public Use
  Company Number: DE-009507513-1803DEU008864

PATIENT
  Age: 60 Year
  Sex: Female
  Weight: 55 kg

DRUGS (3)
  1. DENOSUMAB [Suspect]
     Active Substance: DENOSUMAB
     Indication: LUMBAR VERTEBRAL FRACTURE
     Dosage: UNK
     Route: 065
     Dates: start: 201302
  2. ALENDRONATE SODIUM. [Suspect]
     Active Substance: ALENDRONATE SODIUM
     Dosage: UNK
     Route: 065
     Dates: start: 201302
  3. DENOSUMAB [Suspect]
     Active Substance: DENOSUMAB
     Indication: SPINAL FRACTURE

REACTIONS (2)
  - Spinal fracture [Unknown]
  - Low turnover osteopathy [Unknown]
